FAERS Safety Report 8823760 (Version 2)
Quarter: 2012Q4

REPORT INFORMATION
  Report Type: 
  Country: US (occurrence: US)
  Receive Date: 20121003
  Receipt Date: 20121211
  Transmission Date: 20130627
  Serious: Yes (Hospitalization)
  Sender: FDA-Public Use
  Company Number: US-009507513-1107USA03024

PATIENT
  Age: 76 Year
  Sex: Male

DRUGS (4)
  1. JANUVIA [Suspect]
     Route: 048
  2. AMARYL [Suspect]
     Indication: TYPE 2 DIABETES MELLITUS
     Dosage: 4 mg, bid
     Route: 048
     Dates: end: 20110608
  3. AMARYL [Suspect]
     Dosage: 4 mg, qd
     Route: 048
  4. ACTOS [Suspect]

REACTIONS (1)
  - Coronary artery bypass [Unknown]
